FAERS Safety Report 12315207 (Version 1)
Quarter: 2016Q2

REPORT INFORMATION
  Report Type: Spontaneous
  Country: US (occurrence: US)
  Receive Date: 20160428
  Receipt Date: 20160428
  Transmission Date: 20160815
  Serious: Yes (Disabling, Other)
  Sender: FDA-Public Use
  Company Number: US-EGALET US INC-US-2016EGA000182

PATIENT

DRUGS (29)
  1. OXYCODONE HYDROCHLORIDE. [Suspect]
     Active Substance: OXYCODONE HYDROCHLORIDE
     Dosage: 30 MG IR, PRN AS ORDERED, THROUGH WEEKS 1-4 CONVERSION TO METHADONE
     Route: 048
  2. OXYCODONE HYDROCHLORIDE. [Suspect]
     Active Substance: OXYCODONE HYDROCHLORIDE
     Dosage: 160 MG EXTENDED RELAESE, BID, IN WEEK 3 CONVERSION TO METHADONE
     Route: 048
  3. TIZANIDINE. [Concomitant]
     Active Substance: TIZANIDINE
     Indication: PRODUCT USED FOR UNKNOWN INDICATION
     Dosage: 4 MG, BID
     Route: 048
  4. ASCORBIC ACID. [Concomitant]
     Active Substance: ASCORBIC ACID
     Indication: PRODUCT USED FOR UNKNOWN INDICATION
     Dosage: 500 MG, DAILY
     Route: 048
  5. OXYCODONE HYDROCHLORIDE. [Suspect]
     Active Substance: OXYCODONE HYDROCHLORIDE
     Indication: PRODUCT USED FOR UNKNOWN INDICATION
     Dosage: 240 MG EXTENDED RELEASE, FOUR TIMES DAILY, ON INITIAL PRESENTATION
     Route: 048
  6. FENTANYL. [Suspect]
     Active Substance: FENTANYL
     Dosage: 200 ?G, EVERY 72 HOURS, IN WEEK 1 OF FENTANYL CONVERSION TO METHADONE
     Route: 062
  7. METHADONE [Suspect]
     Active Substance: METHADONE HYDROCHLORIDE
     Indication: PAIN MANAGEMENT
     Dosage: 5 MG, TID, IN WEEK 1 OF OXYCODONE EXTENDED RELEASE CONVERSION TO METHADONE
     Route: 048
  8. FENTANYL. [Suspect]
     Active Substance: FENTANYL
     Dosage: 125 ?G, EVERY 72 HOURS, IN WEEK 2 OF  FENTANYL CONVERSION TO METHADONE TO METHADONE
     Route: 062
  9. METHADONE [Suspect]
     Active Substance: METHADONE HYDROCHLORIDE
     Dosage: 30 MG, TID, IN WEEK 2 OF TRANSDERMAL FENTANYL CONVERSION TO METHADONE
     Route: 048
  10. ACETAMINOPHEN. [Concomitant]
     Active Substance: ACETAMINOPHEN
     Indication: HEADACHE
     Dosage: 650 MG, EVERY 4 HOURS AS NEEDED
     Route: 048
  11. MULTIVITAMIN                       /00097801/ [Concomitant]
     Active Substance: VITAMINS
     Indication: PRODUCT USED FOR UNKNOWN INDICATION
     Dosage: UNK, DAILY
  12. HYOSCYAMINE. [Concomitant]
     Active Substance: HYOSCYAMINE
     Indication: ABDOMINAL PAIN UPPER
     Dosage: 0.125 MG, EVERY 4 HOURS PRN
     Route: 060
  13. OXYCODONE HYDROCHLORIDE. [Suspect]
     Active Substance: OXYCODONE HYDROCHLORIDE
     Dosage: 240 MG EXTENDED RELAESE, TID IN WEEK 1 CONVERSION TO METHADONE
     Route: 048
  14. METHADONE [Suspect]
     Active Substance: METHADONE HYDROCHLORIDE
     Indication: DRUG DEPENDENCE
     Dosage: 10 MG, TID, IN WEEK 2 OF OXYCODONE EXTENDED RELEASE CONVERSION TO METHADONE
     Route: 048
  15. METHADONE [Suspect]
     Active Substance: METHADONE HYDROCHLORIDE
     Dosage: 40 MG, TID, STARTING IN WEEK 4 OF TRANSDERMAL FENTANYL CONVERSION TO METHADONE
     Route: 048
  16. CALCIUM CARBONATE. [Concomitant]
     Active Substance: CALCIUM CARBONATE
     Indication: DYSPEPSIA
     Dosage: 500 MG, EVERY 8 HOURS PRN
     Route: 048
  17. FENTANYL. [Suspect]
     Active Substance: FENTANYL
     Dosage: 75 ?G, EVERY 72 HOURS IN WEEK 3 OF FENTANYL CONVERSION TO METHADONE
     Route: 062
  18. OXYCODONE HYDROCHLORIDE. [Suspect]
     Active Substance: OXYCODONE HYDROCHLORIDE
     Dosage: 240 MG EXTENDED RELAESE, BID, IN WEEK 2 CONVERSION TO METHADONE
     Route: 048
  19. METHADONE [Suspect]
     Active Substance: METHADONE HYDROCHLORIDE
     Dosage: 35 MG, TID, IN WEEK 3 OF TRANSDERMAL FENTANYL CONVERSION TO METHADONE
     Route: 048
  20. DIAZEPAM. [Concomitant]
     Active Substance: DIAZEPAM
     Indication: MUSCLE SPASMS
     Dosage: 5 MG, FIVE TIMES DAILY
     Route: 048
  21. FENTANYL. [Suspect]
     Active Substance: FENTANYL
     Dosage: 25 ?G, EVERY 72 HOURS, IN WEEK 4 OF  FENTANYL CONVERSION TO METHADONE
     Route: 062
  22. METHADONE [Suspect]
     Active Substance: METHADONE HYDROCHLORIDE
     Dosage: 20 MG, TID, IN WEEK 4 OF OXYCODONE EXTENDED RELEASE CONVERSION TO METHADONE
     Route: 048
  23. POLYETHYLENE GLYCOL [Concomitant]
     Active Substance: POLYETHYLENE GLYCOLS
     Indication: PRODUCT USED FOR UNKNOWN INDICATION
     Dosage: 34 G, DAILY AT BEDTIME
  24. OXYCODONE HYDROCHLORIDE. [Suspect]
     Active Substance: OXYCODONE HYDROCHLORIDE
     Dosage: 80 MG EXTENDED RELAESE, BID, BETWEEN WEEKS 3 AND 4
     Route: 048
  25. FENTANYL. [Suspect]
     Active Substance: FENTANYL
     Indication: PRODUCT USED FOR UNKNOWN INDICATION
     Dosage: 250 ?G, EVERY 72 HOURS, ON INITIAL PRESENTATION
     Route: 062
  26. METHADONE [Suspect]
     Active Substance: METHADONE HYDROCHLORIDE
     Dosage: 15 MG, TID, IN WEEK 3 OF OXYCODONE EXTENDED RELEASE CONVERSION TO METHADONE
     Route: 048
  27. METHADONE [Suspect]
     Active Substance: METHADONE HYDROCHLORIDE
     Dosage: 25 MG, TID, IN WEEK 1 OF TRANSDERMAL FENTANYL CONVERSION TO METHADONE
     Route: 048
  28. ETODOLAC. [Concomitant]
     Active Substance: ETODOLAC
     Indication: PRODUCT USED FOR UNKNOWN INDICATION
     Dosage: 400 MG, BID
     Route: 048
  29. OXYCODONE HYDROCHLORIDE. [Suspect]
     Active Substance: OXYCODONE HYDROCHLORIDE
     Dosage: 40 MG, BID AT NOON AND 6PM, ON INITIAL PRESENTATION
     Route: 048

REACTIONS (9)
  - Pain [Unknown]
  - Urinary tract disorder [Unknown]
  - Drug withdrawal syndrome [Unknown]
  - Activities of daily living impaired [Recovered/Resolved]
  - Diarrhoea [Unknown]
  - Mydriasis [Unknown]
  - Hyperhidrosis [Unknown]
  - Piloerection [Unknown]
  - Abdominal pain [Unknown]
